FAERS Safety Report 7767815-3 (Version None)
Quarter: 2011Q3

REPORT INFORMATION
  Report Type: 
  Country: None (occurrence: None)
  Receive Date: 20110922
  Receipt Date: 20110606
  Transmission Date: 20111222
  Serious: No
  Sender: FDA-Public Use
  Company Number: US-ASTRAZENECA-2011SE34796

PATIENT
  Age: 49 Year
  Sex: Male

DRUGS (2)
  1. SEROQUEL [Suspect]
     Indication: ANXIETY
     Route: 048
  2. SEROQUEL [Suspect]
     Indication: DEPRESSION
     Route: 048

REACTIONS (5)
  - DRUG DOSE OMISSION [None]
  - INFLUENZA [None]
  - DIARRHOEA [None]
  - MALAISE [None]
  - ABDOMINAL DISCOMFORT [None]
